FAERS Safety Report 7324334-6 (Version None)
Quarter: 2011Q1

REPORT INFORMATION
  Report Type: 
  Country: None (occurrence: None)
  Receive Date: 20110301
  Receipt Date: 20110224
  Transmission Date: 20110831
  Serious: Yes (Other)
  Sender: FDA-Public Use
  Company Number: US-PFIZER INC-2011038628

PATIENT
  Sex: Male

DRUGS (2)
  1. SUTENT [Suspect]
     Dosage: 50 MG, DAILY
     Dates: start: 20110128
  2. LISINOPRIL [Concomitant]
     Dosage: UNK

REACTIONS (3)
  - GLOSSODYNIA [None]
  - FATIGUE [None]
  - HYPOTENSION [None]
